FAERS Safety Report 5952488-2 (Version None)
Quarter: 2008Q4

REPORT INFORMATION
  Report Type: 
  Country: None (occurrence: None)
  Receive Date: 20081113
  Receipt Date: 20081110
  Transmission Date: 20090506
  Serious: Yes (Hospitalization, Other)
  Sender: FDA-Public Use
  Company Number: FR-GILEAD-2008-0018877

PATIENT
  Sex: Male

DRUGS (5)
  1. HEPSERA [Suspect]
     Indication: HEPATITIS B VIRUS TEST
     Dates: start: 20061001, end: 20070601
  2. LAMIVUDINE [Concomitant]
     Indication: HEPATITIS B VIRUS TEST
  3. MYCOPHENOLATE MOFETIL [Concomitant]
  4. FELODIPINE [Concomitant]
  5. FUROSEMIDE [Concomitant]

REACTIONS (5)
  - FANCONI SYNDROME ACQUIRED [None]
  - OSTEOPOROSIS [None]
  - RENAL FAILURE ACUTE [None]
  - RENAL FAILURE CHRONIC [None]
  - RENAL TUBULAR NECROSIS [None]
